FAERS Safety Report 5288970-3 (Version None)
Quarter: 2007Q2

REPORT INFORMATION
  Report Type: 
  Country: None (occurrence: None)
  Receive Date: 20070405
  Receipt Date: 20070326
  Transmission Date: 20071010
  Serious: Yes (Other)
  Sender: FDA-Public Use
  Company Number: US-PFIZER INC-2007013887

PATIENT
  Sex: Female
  Weight: 67.1 kg

DRUGS (7)
  1. CHANTIX [Suspect]
     Indication: SMOKING CESSATION THERAPY
     Dates: start: 20070130, end: 20070216
  2. CARISOPRODOL [Concomitant]
  3. ATIVAN [Concomitant]
  4. NAPROXEN [Concomitant]
  5. MONTELUKAST SODIUM [Concomitant]
  6. SEROQUEL [Concomitant]
  7. PREMARIN [Concomitant]
     Dates: end: 20070201

REACTIONS (9)
  - ADVERSE DRUG REACTION [None]
  - CONSTIPATION [None]
  - DRUG WITHDRAWAL SYNDROME [None]
  - EMOTIONAL DISORDER [None]
  - PAIN [None]
  - SMOKER [None]
  - SOMNOLENCE [None]
  - STRESS [None]
  - THINKING ABNORMAL [None]
